FAERS Safety Report 10215263 (Version 1)
Quarter: 2014Q2

REPORT INFORMATION
  Report Type: Spontaneous
  Country: BR (occurrence: BR)
  Receive Date: 20140603
  Receipt Date: 20140603
  Transmission Date: 20141212
  Serious: Yes (Hospitalization, Other)
  Sender: FDA-Public Use
  Company Number: PHHY2014BR067813

PATIENT
  Age: 63 Year
  Sex: Male
  Weight: 55 kg

DRUGS (2)
  1. DIOVAN [Suspect]
     Indication: HYPERTENSION
     Dosage: 1 TABLET DAILY
     Route: 048
  2. AAS [Concomitant]
     Indication: CARDIAC DISORDER
     Dosage: 1 TABLET DAILY
     Route: 048

REACTIONS (1)
  - Infarction [Recovering/Resolving]
